FAERS Safety Report 24175154 (Version 2)
Quarter: 2024Q4

REPORT INFORMATION
  Report Type: Spontaneous
  Country: CA (occurrence: CA)
  Receive Date: 20240805
  Receipt Date: 20241107
  Transmission Date: 20250114
  Serious: Yes (Other)
  Sender: BRISTOL-MYERS SQUIBB COMPANY
  Company Number: CA-BRISTOL-MYERS SQUIBB COMPANY-2024-118041

PATIENT
  Age: 43 Year
  Sex: Female

DRUGS (167)
  1. TRIAMCINOLONE ACETONIDE [Suspect]
     Active Substance: TRIAMCINOLONE ACETONIDE
     Indication: Product used for unknown indication
     Dosage: 25 MG
  2. ACETAMINOPHEN [Concomitant]
     Active Substance: ACETAMINOPHEN
     Indication: Product used for unknown indication
  3. AIMOVIG [Concomitant]
     Active Substance: ERENUMAB-AOOE
     Indication: Migraine
  4. AIMOVIG [Concomitant]
     Active Substance: ERENUMAB-AOOE
  5. ATOMOXETINE HYDROCHLORIDE [Concomitant]
     Active Substance: ATOMOXETINE HYDROCHLORIDE
     Indication: Migraine
  6. ATOMOXETINE HYDROCHLORIDE [Concomitant]
     Active Substance: ATOMOXETINE HYDROCHLORIDE
  7. ATOMOXETINE HYDROCHLORIDE [Concomitant]
     Active Substance: ATOMOXETINE HYDROCHLORIDE
     Route: 005
  8. ATOMOXETINE HYDROCHLORIDE [Concomitant]
     Active Substance: ATOMOXETINE HYDROCHLORIDE
     Route: 005
  9. ATOMOXETINE HYDROCHLORIDE [Concomitant]
     Active Substance: ATOMOXETINE HYDROCHLORIDE
  10. ATOMOXETINE HYDROCHLORIDE [Concomitant]
     Active Substance: ATOMOXETINE HYDROCHLORIDE
  11. ATOMOXETINE HYDROCHLORIDE [Concomitant]
     Active Substance: ATOMOXETINE HYDROCHLORIDE
  12. ATOMOXETINE HYDROCHLORIDE [Concomitant]
     Active Substance: ATOMOXETINE HYDROCHLORIDE
  13. FLUTICASONE FUROATE [Concomitant]
     Active Substance: FLUTICASONE FUROATE
     Indication: Product used for unknown indication
  14. FLUTICASONE FUROATE [Concomitant]
     Active Substance: FLUTICASONE FUROATE
     Dosage: SPRAY, METERED DOSE
  15. AZELAIC ACID [Concomitant]
     Active Substance: AZELAIC ACID
     Indication: Product used for unknown indication
  16. AZELAIC ACID [Concomitant]
     Active Substance: AZELAIC ACID
     Route: 005
  17. BETAMETHASONE [Concomitant]
     Active Substance: BETAMETHASONE
     Indication: Product used for unknown indication
  18. BETAMETHASONE [Concomitant]
     Active Substance: BETAMETHASONE
  19. BETAMETHASONE [Concomitant]
     Active Substance: BETAMETHASONE
  20. BETAMETHASONE VALERATE [Concomitant]
     Active Substance: BETAMETHASONE VALERATE
     Indication: Product used for unknown indication
  21. BETAMETHASONE VALERATE [Concomitant]
     Active Substance: BETAMETHASONE VALERATE
  22. BOTOX [Concomitant]
     Active Substance: ONABOTULINUMTOXINA
     Indication: Migraine
  23. BOTULINUM TOXIN TYPE A [Concomitant]
     Active Substance: BOTULINUM TOXIN TYPE A
     Indication: Migraine
  24. BOTULINUM TOXIN TYPE A [Concomitant]
     Active Substance: BOTULINUM TOXIN TYPE A
  25. BUPRENORPHINE HYDROCHLORIDE [Concomitant]
     Active Substance: BUPRENORPHINE HYDROCHLORIDE
     Indication: Product used for unknown indication
  26. BUTRANS [Concomitant]
     Active Substance: BUPRENORPHINE
     Indication: Product used for unknown indication
     Dosage: PATCH
  27. CALCIUM [Concomitant]
     Active Substance: CALCIUM
     Indication: Product used for unknown indication
  28. CALCIUM CARBONATE [Concomitant]
     Active Substance: CALCIUM CARBONATE
     Indication: Product used for unknown indication
  29. CALCIUM GLUCONATE [Concomitant]
     Active Substance: CALCIUM GLUCONATE
     Indication: Product used for unknown indication
  30. CALCIUM PANTOTHENATE [Concomitant]
     Active Substance: CALCIUM PANTOTHENATE
     Indication: Product used for unknown indication
  31. CALCIUM\CHOLECALCIFEROL\MAGNESIUM [Concomitant]
     Active Substance: CALCIUM\CHOLECALCIFEROL\MAGNESIUM
     Indication: Product used for unknown indication
  32. CANDESARTAN [Concomitant]
     Active Substance: CANDESARTAN
     Indication: Migraine
     Route: 048
  33. CETIRIZINE [Concomitant]
     Active Substance: CETIRIZINE HYDROCHLORIDE
     Indication: Product used for unknown indication
  34. CETIRIZINE [Concomitant]
     Active Substance: CETIRIZINE HYDROCHLORIDE
  35. CETIRIZINE [Concomitant]
     Active Substance: CETIRIZINE HYDROCHLORIDE
     Route: 048
  36. CETIRIZINE [Concomitant]
     Active Substance: CETIRIZINE HYDROCHLORIDE
     Route: 048
  37. CETIRIZINE HYDROCHLORIDE [Concomitant]
     Active Substance: CETIRIZINE HYDROCHLORIDE
     Indication: Product used for unknown indication
  38. CETIRIZINE HYDROCHLORIDE [Concomitant]
     Active Substance: CETIRIZINE HYDROCHLORIDE
  39. CETIRIZINE HYDROCHLORIDE [Concomitant]
     Active Substance: CETIRIZINE HYDROCHLORIDE
     Route: 048
  40. CETIRIZINE HYDROCHLORIDE [Concomitant]
     Active Substance: CETIRIZINE HYDROCHLORIDE
  41. CETIRIZINE HYDROCHLORIDE [Concomitant]
     Active Substance: CETIRIZINE HYDROCHLORIDE
  42. CETIRIZINE HYDROCHLORIDE\PSEUDOEPHEDRINE HYDROCHLORIDE [Concomitant]
     Active Substance: CETIRIZINE HYDROCHLORIDE\PSEUDOEPHEDRINE HYDROCHLORIDE
     Indication: Product used for unknown indication
  43. TRICHOLINE CITRATE [Concomitant]
     Active Substance: TRICHOLINE CITRATE
     Indication: Product used for unknown indication
  44. CORTISONE [Concomitant]
     Active Substance: CORTISONE
     Indication: Product used for unknown indication
     Dosage: EVERY 12 HOURS
  45. CORTISONE [Concomitant]
     Active Substance: CORTISONE
  46. CORTISONE [Concomitant]
     Active Substance: CORTISONE
  47. CORTISONE [Concomitant]
     Active Substance: CORTISONE
  48. CORTISONE (HYDROCORTISONE) [Concomitant]
     Active Substance: HYDROCORTISONE
     Indication: Product used for unknown indication
  49. CORTISONE (HYDROCORTISONE) [Concomitant]
     Active Substance: HYDROCORTISONE
  50. CORTISONE (HYDROCORTISONE) [Concomitant]
     Active Substance: HYDROCORTISONE
  51. CYANOCOBALAMIN [Concomitant]
     Active Substance: CYANOCOBALAMIN
     Indication: Product used for unknown indication
  52. CYANOCOBALAMIN [Concomitant]
     Active Substance: CYANOCOBALAMIN
     Route: 048
  53. CYCLOBENZAPRINE [Concomitant]
     Active Substance: CYCLOBENZAPRINE
     Indication: Product used for unknown indication
  54. CYCLOBENZAPRINE [Concomitant]
     Active Substance: CYCLOBENZAPRINE
  55. DESOXIMETASONE [Concomitant]
     Active Substance: DESOXIMETASONE
     Indication: Product used for unknown indication
  56. DESOXIMETASONE [Concomitant]
     Active Substance: DESOXIMETASONE
  57. DESOXIMETASONE [Concomitant]
     Active Substance: DESOXIMETASONE
     Dosage: EVERY 12 HOURS
  58. DESOXIMETASONE [Concomitant]
     Active Substance: DESOXIMETASONE
  59. DESOXIMETASONE [Concomitant]
     Active Substance: DESOXIMETASONE
  60. DESOXIMETASONE [Concomitant]
     Active Substance: DESOXIMETASONE
  61. DESOXIMETASONE [Concomitant]
     Active Substance: DESOXIMETASONE
  62. DESOXIMETASONE [Concomitant]
     Active Substance: DESOXIMETASONE
  63. DESOXIMETASONE [Concomitant]
     Active Substance: DESOXIMETASONE
  64. DOMPERIDONE MALEATE [Concomitant]
     Active Substance: DOMPERIDONE MALEATE
     Indication: Product used for unknown indication
  65. DOMPERIDONE MALEATE [Concomitant]
     Active Substance: DOMPERIDONE MALEATE
  66. DOMPERIDONE MALEATE [Concomitant]
     Active Substance: DOMPERIDONE MALEATE
  67. DOMPERIDONE MALEATE [Concomitant]
     Active Substance: DOMPERIDONE MALEATE
  68. DOMPERIDONE MALEATE [Concomitant]
     Active Substance: DOMPERIDONE MALEATE
  69. DOMPERIDONE\PANTOPRAZOLE SODIUM [Concomitant]
     Active Substance: DOMPERIDONE\PANTOPRAZOLE SODIUM
     Indication: Product used for unknown indication
  70. DOMPERIDONE\PANTOPRAZOLE SODIUM [Concomitant]
     Active Substance: DOMPERIDONE\PANTOPRAZOLE SODIUM
  71. ERENUMAB [Concomitant]
     Active Substance: ERENUMAB
     Indication: Migraine
  72. ERENUMAB [Concomitant]
     Active Substance: ERENUMAB
  73. ERENUMAB [Concomitant]
     Active Substance: ERENUMAB
  74. ERENUMAB-AOOE [Concomitant]
     Active Substance: ERENUMAB-AOOE
     Indication: Migraine
  75. ERGOCALCIFEROL [Concomitant]
     Active Substance: ERGOCALCIFEROL
     Indication: Product used for unknown indication
  76. ERGOCALCIFEROL [Concomitant]
     Active Substance: ERGOCALCIFEROL
  77. FETZIMA [Concomitant]
     Active Substance: LEVOMILNACIPRAN HYDROCHLORIDE
     Indication: Product used for unknown indication
  78. FETZIMA [Concomitant]
     Active Substance: LEVOMILNACIPRAN HYDROCHLORIDE
  79. FINACEA [Concomitant]
     Active Substance: AZELAIC ACID
     Indication: Product used for unknown indication
     Route: 048
  80. FINACEA [Concomitant]
     Active Substance: AZELAIC ACID
  81. FLUTICASONE FUROATE [Concomitant]
     Active Substance: FLUTICASONE FUROATE
     Indication: Product used for unknown indication
  82. FOLIC ACID [Concomitant]
     Active Substance: FOLIC ACID
     Indication: Product used for unknown indication
  83. HYDROMORPHONE [Concomitant]
     Active Substance: HYDROMORPHONE
     Indication: Product used for unknown indication
  84. HYDROMORPHONE [Concomitant]
     Active Substance: HYDROMORPHONE
  85. HYDROMORPHONE [Concomitant]
     Active Substance: HYDROMORPHONE
  86. HYDROMORPHONE [Concomitant]
     Active Substance: HYDROMORPHONE
  87. LAMICTAL [Concomitant]
     Active Substance: LAMOTRIGINE
     Indication: Product used for unknown indication
  88. LAMICTAL [Concomitant]
     Active Substance: LAMOTRIGINE
     Route: 048
  89. LAMICTAL [Concomitant]
     Active Substance: LAMOTRIGINE
     Route: 048
  90. LAMICTAL [Concomitant]
     Active Substance: LAMOTRIGINE
     Route: 048
  91. LAMICTAL [Concomitant]
     Active Substance: LAMOTRIGINE
     Dosage: EVERY 12 HOURS
  92. LAMICTAL [Concomitant]
     Active Substance: LAMOTRIGINE
     Route: 048
  93. LAMICTAL [Concomitant]
     Active Substance: LAMOTRIGINE
  94. LAMOTRIGINE [Concomitant]
     Active Substance: LAMOTRIGINE
     Indication: Product used for unknown indication
     Route: 048
  95. LAMOTRIGINE [Concomitant]
     Active Substance: LAMOTRIGINE
     Dosage: EVERY 12 HOURS
     Route: 048
  96. LAMOTRIGINE [Concomitant]
     Active Substance: LAMOTRIGINE
     Dosage: EVERY 12 HOURS
     Route: 048
  97. MAGNESIUM [Concomitant]
     Active Substance: MAGNESIUM
     Indication: Product used for unknown indication
  98. MAGNESIUM CARBONATE [Concomitant]
     Active Substance: MAGNESIUM CARBONATE
     Indication: Product used for unknown indication
  99. MILNACIPRAN HYDROCHLORIDE [Concomitant]
     Active Substance: MILNACIPRAN HYDROCHLORIDE
     Indication: Product used for unknown indication
  100. MILNACIPRAN HYDROCHLORIDE [Concomitant]
     Active Substance: MILNACIPRAN HYDROCHLORIDE
  101. MYRBETRIQ [Concomitant]
     Active Substance: MIRABEGRON
     Indication: Migraine
     Route: 048
  102. MYRBETRIQ [Concomitant]
     Active Substance: MIRABEGRON
     Route: 048
  103. MYRBETRIQ [Concomitant]
     Active Substance: MIRABEGRON
  104. NAPROXEN [Concomitant]
     Active Substance: NAPROXEN
     Indication: Product used for unknown indication
  105. NAPROXEN [Concomitant]
     Active Substance: NAPROXEN
     Dosage: EVERY 12 HOURS
     Route: 005
  106. NAPROXEN [Concomitant]
     Active Substance: NAPROXEN
  107. NAPROXEN [Concomitant]
     Active Substance: NAPROXEN
  108. NAPROXEN [Concomitant]
     Active Substance: NAPROXEN
     Dosage: EVERY 12 HOURS
  109. NAPROXEN [Concomitant]
     Active Substance: NAPROXEN
     Dosage: EVERY 12 HOURS
  110. NAPROXEN [Concomitant]
     Active Substance: NAPROXEN
     Route: 005
  111. NAPROXEN [Concomitant]
     Active Substance: NAPROXEN
  112. NAPROXEN [Concomitant]
     Active Substance: NAPROXEN
  113. PANTOPRAZOLE [Concomitant]
     Active Substance: PANTOPRAZOLE
     Indication: Product used for unknown indication
  114. PANTOPRAZOLE [Concomitant]
     Active Substance: PANTOPRAZOLE
  115. PANTOPRAZOLE [Concomitant]
     Active Substance: PANTOPRAZOLE
  116. PANTOPRAZOLE [Concomitant]
     Active Substance: PANTOPRAZOLE
     Route: 048
  117. PANTOPRAZOLE [Concomitant]
     Active Substance: PANTOPRAZOLE
  118. PANTOPRAZOLE [Concomitant]
     Active Substance: PANTOPRAZOLE
     Route: 048
  119. PANTOPRAZOLE [Concomitant]
     Active Substance: PANTOPRAZOLE
  120. PANTOPRAZOLE [Concomitant]
     Active Substance: PANTOPRAZOLE
  121. PANTOPRAZOLE [Concomitant]
     Active Substance: PANTOPRAZOLE
  122. PANTOPRAZOLE [Concomitant]
     Active Substance: PANTOPRAZOLE
  123. PANTOPRAZOLE [Concomitant]
     Active Substance: PANTOPRAZOLE
  124. PANTOPRAZOLE [Concomitant]
     Active Substance: PANTOPRAZOLE
  125. PANTOPRAZOLE [Concomitant]
     Active Substance: PANTOPRAZOLE
  126. PANTOPRAZOLE [Concomitant]
     Active Substance: PANTOPRAZOLE
  127. PAROXETINE [Concomitant]
     Active Substance: PAROXETINE
     Indication: Product used for unknown indication
  128. PAROXETINE HYDROCHLORIDE [Concomitant]
     Active Substance: PAROXETINE HYDROCHLORIDE
     Indication: Product used for unknown indication
  129. PHOSPHORUS [Concomitant]
     Active Substance: PHOSPHORUS
     Indication: Product used for unknown indication
  130. PREDNICARBATE [Concomitant]
     Active Substance: PREDNICARBATE
     Indication: Product used for unknown indication
  131. PSEUDOEPHEDRINE HYDROCHLORIDE [Concomitant]
     Active Substance: PSEUDOEPHEDRINE HYDROCHLORIDE
     Indication: Product used for unknown indication
  132. PSEUDOEPHEDRINE HYDROCHLORIDE [Concomitant]
     Active Substance: PSEUDOEPHEDRINE HYDROCHLORIDE
  133. PYRIDOXINE HYDROCHLORIDE [Concomitant]
     Active Substance: PYRIDOXINE HYDROCHLORIDE
     Indication: Product used for unknown indication
  134. RANITIDINE HYDROCHLORIDE [Concomitant]
     Active Substance: RANITIDINE HYDROCHLORIDE
     Indication: Product used for unknown indication
  135. CETIRIZINE HYDROCHLORIDE\PSEUDOEPHEDRINE HYDROCHLORIDE [Concomitant]
     Active Substance: CETIRIZINE HYDROCHLORIDE\PSEUDOEPHEDRINE HYDROCHLORIDE
     Indication: Product used for unknown indication
     Route: 048
  136. RIBOFLAVIN [Concomitant]
     Active Substance: RIBOFLAVIN
     Indication: Product used for unknown indication
  137. RIBOFLAVIN\THIAMINE HYDROCHLORIDE [Concomitant]
     Active Substance: RIBOFLAVIN\THIAMINE HYDROCHLORIDE
     Indication: Product used for unknown indication
  138. STRATTERA [Concomitant]
     Active Substance: ATOMOXETINE HYDROCHLORIDE
     Indication: Migraine
  139. THIAMINE HYDROCHLORIDE [Concomitant]
     Active Substance: THIAMINE HYDROCHLORIDE
     Indication: Product used for unknown indication
  140. TOPAMAX [Concomitant]
     Active Substance: TOPIRAMATE
     Indication: Product used for unknown indication
  141. TOPAMAX [Concomitant]
     Active Substance: TOPIRAMATE
  142. TOPIRAMATE [Concomitant]
     Active Substance: TOPIRAMATE
     Indication: Migraine
  143. TOPIRAMATE [Concomitant]
     Active Substance: TOPIRAMATE
  144. TOPIRAMATE [Concomitant]
     Active Substance: TOPIRAMATE
  145. TOPIRAMATE [Concomitant]
     Active Substance: TOPIRAMATE
  146. TOPIRAMATE [Concomitant]
     Active Substance: TOPIRAMATE
     Dosage: EVERY 12 HOURS
  147. TOPIRAMATE [Concomitant]
     Active Substance: TOPIRAMATE
  148. TOPIRAMATE [Concomitant]
     Active Substance: TOPIRAMATE
  149. TRAZODONE [Concomitant]
     Active Substance: TRAZODONE HYDROCHLORIDE
     Indication: Product used for unknown indication
  150. TRAZODONE [Concomitant]
     Active Substance: TRAZODONE HYDROCHLORIDE
  151. TRAZODONE [Concomitant]
     Active Substance: TRAZODONE HYDROCHLORIDE
  152. TRAZODONE [Concomitant]
     Active Substance: TRAZODONE HYDROCHLORIDE
  153. TRETINOIN [Concomitant]
     Active Substance: TRETINOIN
     Indication: Product used for unknown indication
  154. RETINOL [Concomitant]
     Active Substance: RETINOL
     Indication: Product used for unknown indication
  155. VITAMIN C [Concomitant]
     Active Substance: ASCORBIC ACID
     Indication: Product used for unknown indication
  156. VITAMIN D NOS [Concomitant]
     Active Substance: CHOLECALCIFEROL\ERGOCALCIFEROL
     Indication: Product used for unknown indication
  157. VITAMIN D3 [Concomitant]
     Active Substance: CHOLECALCIFEROL
     Indication: Product used for unknown indication
  158. VITAMIN D3 [Concomitant]
     Active Substance: CHOLECALCIFEROL
  159. VITAMIN D3 [Concomitant]
     Active Substance: CHOLECALCIFEROL
  160. VITAMIN D3 [Concomitant]
     Active Substance: CHOLECALCIFEROL
  161. NICOTINAMIDE [Concomitant]
     Active Substance: NIACINAMIDE
     Indication: Product used for unknown indication
  162. CETIRIZINE HYDROCHLORIDE [Concomitant]
     Active Substance: CETIRIZINE HYDROCHLORIDE
     Indication: Product used for unknown indication
  163. TOPICORT [Concomitant]
     Active Substance: DESOXIMETASONE
     Indication: Product used for unknown indication
  164. TOPICORT [Concomitant]
     Active Substance: DESOXIMETASONE
  165. TOPICORT [Concomitant]
     Active Substance: DESOXIMETASONE
  166. TOPICORT [Concomitant]
     Active Substance: DESOXIMETASONE
  167. TOPICORT [Concomitant]
     Active Substance: DESOXIMETASONE

REACTIONS (13)
  - Abdominal pain upper [Unknown]
  - Blepharospasm [Unknown]
  - Drug ineffective [Unknown]
  - Drug intolerance [Unknown]
  - Epilepsy [Unknown]
  - Gastrooesophageal reflux disease [Unknown]
  - Hypoaesthesia [Unknown]
  - Memory impairment [Unknown]
  - Migraine [Unknown]
  - Pain [Unknown]
  - Paraesthesia [Unknown]
  - Taste disorder [Unknown]
  - Vomiting [Unknown]
